FAERS Safety Report 4886337-0 (Version None)
Quarter: 2006Q1

REPORT INFORMATION
  Report Type: 
  Country: None (occurrence: None)
  Receive Date: 20060118
  Receipt Date: 20060105
  Transmission Date: 20060701
  Serious: Yes (Other)
  Sender: FDA-Public Use
  Company Number: 2006005562

PATIENT
  Age: 58 Year
  Sex: Female

DRUGS (3)
  1. ZITHROMAX [Suspect]
     Indication: SINUSITIS
     Dates: start: 20051220, end: 20051224
  2. ALL OTHER THERAPEUTIC PRODUCTS (ALL OTHER THERAPEUTIC PRODUCTS) [Suspect]
     Indication: SINUSITIS
  3. HERBAL PREPARATION [Concomitant]

REACTIONS (2)
  - HEADACHE [None]
  - METRORRHAGIA [None]
